FAERS Safety Report 4532417-9 (Version None)
Quarter: 2004Q4

REPORT INFORMATION
  Report Type: 
  Country: None (occurrence: None)
  Receive Date: 20041217
  Receipt Date: 20041206
  Transmission Date: 20050328
  Serious: Yes (Hospitalization)
  Sender: FDA-Public Use
  Company Number: HQWYE771906DEC04

PATIENT
  Age: 24 Year
  Sex: Female

DRUGS (8)
  1. ZOSYN [Suspect]
     Indication: ABDOMINAL INFECTION
     Dosage: 3.375 G EVERY 6 HOURS, INTRAVENOUS
     Route: 042
     Dates: start: 20010904, end: 20010910
  2. TYLENOL W/ CODEINE NO. 3 [Concomitant]
  3. MORPHINE SULFATE [Concomitant]
  4. VICODIN [Concomitant]
  5. COMPAZINE [Concomitant]
  6. TYLENOL [Concomitant]
  7. DULCOLAX [Concomitant]
  8. DROPERIDOL [Concomitant]

REACTIONS (4)
  - ABDOMINAL ABSCESS [None]
  - BOWEL SOUNDS ABNORMAL [None]
  - SMALL INTESTINAL OBSTRUCTION [None]
  - THERAPY NON-RESPONDER [None]
